FAERS Safety Report 9704826 (Version 1)
Quarter: 2013Q4

REPORT INFORMATION
  Report Type: Report from Study
  Country: US (occurrence: US)
  Receive Date: 20131122
  Receipt Date: 20131122
  Transmission Date: 20140711
  Serious: Yes (Other)
  Sender: FDA-Public Use
  Company Number: US-ABBVIE-13P-163-1169459-00

PATIENT
  Age: 48 Year
  Sex: Female
  Weight: 81.72 kg

DRUGS (12)
  1. HUMIRA [Suspect]
     Indication: RHEUMATOID ARTHRITIS
     Route: 058
     Dates: start: 20131003
  2. HUMIRA [Suspect]
     Indication: HEPATIC FAILURE
  3. METHOTREXATE [Concomitant]
     Indication: PRODUCT USED FOR UNKNOWN INDICATION
  4. FOLIC ACID [Concomitant]
     Indication: PRODUCT USED FOR UNKNOWN INDICATION
  5. VERSITOL [Concomitant]
     Indication: PRODUCT USED FOR UNKNOWN INDICATION
  6. PROTONICS [Concomitant]
     Indication: PRODUCT USED FOR UNKNOWN INDICATION
  7. ASA [Concomitant]
     Indication: PRODUCT USED FOR UNKNOWN INDICATION
  8. LIDOCAINE VISCOUS [Concomitant]
     Indication: PRODUCT USED FOR UNKNOWN INDICATION
  9. PREDNISONE [Concomitant]
     Indication: PRODUCT USED FOR UNKNOWN INDICATION
  10. DILTIAZEM [Concomitant]
     Indication: PRODUCT USED FOR UNKNOWN INDICATION
  11. FLUCONAZOLE [Concomitant]
     Indication: PRODUCT USED FOR UNKNOWN INDICATION
  12. MULTIVITAMINS [Concomitant]
     Indication: PRODUCT USED FOR UNKNOWN INDICATION

REACTIONS (8)
  - Systemic lupus erythematosus [Unknown]
  - Drug dose omission [Unknown]
  - Stomatitis [Unknown]
  - Gingival inflammation [Unknown]
  - Cheilitis [Unknown]
  - Off label use [Unknown]
  - Hepatic failure [Unknown]
  - Sjogren^s syndrome [Unknown]
